FAERS Safety Report 23485079 (Version 2)
Quarter: 2024Q2

REPORT INFORMATION
  Report Type: Spontaneous
  Country: US (occurrence: US)
  Receive Date: 20240206
  Receipt Date: 20240510
  Transmission Date: 20240716
  Serious: Yes (Disabling)
  Sender: FDA-Public Use
  Company Number: US-SA-SAC20240202000141

PATIENT
  Age: 54 Year
  Sex: Female

DRUGS (1)
  1. DUPIXENT [Suspect]
     Active Substance: DUPILUMAB
     Indication: Asthma
     Dosage: 300 MG, QOW
     Route: 058

REACTIONS (10)
  - Loss of personal independence in daily activities [Unknown]
  - Bronchitis [Recovering/Resolving]
  - Dyspnoea [Unknown]
  - Sinusitis [Recovering/Resolving]
  - Asthma [Unknown]
  - Fungal infection [Unknown]
  - Diarrhoea [Unknown]
  - Abdominal discomfort [Unknown]
  - Injection site pain [Unknown]
  - Surgery [Unknown]

NARRATIVE: CASE EVENT DATE: 20240301
